FAERS Safety Report 15278997 (Version 3)
Quarter: 2018Q4

REPORT INFORMATION
  Report Type: Report from Study
  Country: US (occurrence: US)
  Receive Date: 20180815
  Receipt Date: 20181001
  Transmission Date: 20190204
  Serious: Yes (Hospitalization, Other)
  Sender: FDA-Public Use
  Company Number: US-TAKEDA-2018TUS024397

PATIENT
  Sex: Male

DRUGS (3)
  1. PONATINIB [Suspect]
     Active Substance: PONATINIB
     Dosage: 15 MG, UNK
     Route: 048
  2. PREDNISONE. [Suspect]
     Active Substance: PREDNISONE
     Indication: PRODUCT USED FOR UNKNOWN INDICATION
     Dosage: UNK
     Route: 065
  3. PONATINIB [Suspect]
     Active Substance: PONATINIB
     Indication: CHRONIC MYELOID LEUKAEMIA
     Dosage: 30 MG, QD
     Route: 048
     Dates: start: 20170628

REACTIONS (13)
  - Leukaemia recurrent [Unknown]
  - Delusion [Unknown]
  - Temporal arteritis [Unknown]
  - Chest pain [Unknown]
  - Asthenia [Unknown]
  - Unresponsive to stimuli [Unknown]
  - Dysarthria [Unknown]
  - Dyspnoea [Unknown]
  - Adverse event [Unknown]
  - Agitation [Unknown]
  - Hypoacusis [Unknown]
  - Gait disturbance [Unknown]
  - Memory impairment [Unknown]
